FAERS Safety Report 8587923 (Version 2)
Quarter: 2014Q1

REPORT INFORMATION
  Report Type: Spontaneous
  Country: US (occurrence: None)
  Receive Date: 20120323
  Receipt Date: 20130305
  Transmission Date: 20141002
  Serious: Yes (Other)
  Sender: FDA-Public Use
  Company Number: 163-21880-11031454

PATIENT
  Age: 78 Year
  Sex: Female

DRUGS (10)
  1. REVLIMID (LENALIDOMIDE) (5 MILLIGRAM, CAPSULES) [Suspect]
     Indication: PLASMA CELL MYELOMA
     Dosage: 5 MG, 1 IN1 D, PO?
     Route: 048
     Dates: start: 20110202
  2. LISINOPRIL [Concomitant]
  3. LORTAB (VICODIN) (UNKNOWN) [Concomitant]
  4. TIMOLOL MALEATE (TIMOLOL MALEATE) (UNKNOWN) [Concomitant]
  5. ARANESP (DARBEPOETIN ALFA) (UNKNOWN) [Concomitant]
  6. ASA (ACETYLSALICYLIC ACID) (UNKNOWN) [Concomitant]
  7. CIPROFLOXACIN (CIPROFLOXACIN) (UNKNOWN) (CIPROFLOXACIN) [Concomitant]
  8. POTASSIUM CHLORIDE (POTASSIUM CHLORIDE) (UNKNOWN) [Concomitant]
  9. PROZAC (FLUOXETINE HYDORCHLORIDE) (UNKNOWN) [Concomitant]
  10. VELCADE (UNKNOWN) [Concomitant]

REACTIONS (3)
  - Full blood count decreased [None]
  - Back pain [None]
  - Arthralgia [None]
